FAERS Safety Report 5020460-5 (Version None)
Quarter: 2006Q2

REPORT INFORMATION
  Report Type: 
  Country: None (occurrence: None)
  Receive Date: 20060607
  Receipt Date: 20050506
  Transmission Date: 20061013
  Serious: Yes (Death)
  Sender: FDA-Public Use
  Company Number: PRIUSA2000000221

PATIENT
  Age: 61 Year
  Sex: Female

DRUGS (1)
  1. LEUSTATIN [Suspect]
     Indication: HAIRY CELL LEUKAEMIA
     Route: 041
     Dates: start: 19960911, end: 19960917

REACTIONS (7)
  - ACUTE MYELOID LEUKAEMIA [None]
  - ANAEMIA [None]
  - DISSEMINATED INTRAVASCULAR COAGULATION [None]
  - LEUKOPENIA [None]
  - MEDIASTINAL HAEMATOMA [None]
  - PNEUMONITIS [None]
  - THROMBOCYTOPENIA [None]
